FAERS Safety Report 5287149-9 (Version None)
Quarter: 2007Q2

REPORT INFORMATION
  Report Type: 
  Country: None (occurrence: None)
  Receive Date: 20070404
  Receipt Date: 20070328
  Transmission Date: 20071010
  Serious: Yes (Other)
  Sender: FDA-Public Use
  Company Number: CA-PFIZER INC-2007015459

PATIENT
  Sex: Female

DRUGS (18)
  1. DETROL LA [Suspect]
     Indication: URINARY INCONTINENCE
     Route: 048
     Dates: start: 20070213, end: 20070217
  2. DITROPAN [Concomitant]
  3. DITROPAN XL [Concomitant]
  4. VALPROIC ACID [Concomitant]
  5. PLAVIX [Concomitant]
  6. LIPITOR [Concomitant]
  7. ALTACE [Concomitant]
  8. LOSEC [Concomitant]
  9. ELTROXIN [Concomitant]
  10. METOPROLOL SUCCINATE [Concomitant]
  11. HYDROCHLOROTHIAZIDE [Concomitant]
  12. FERROUS GLUCONATE [Concomitant]
  13. ACETYLSALICYLIC ACID SRT [Concomitant]
  14. FOSAMAX [Concomitant]
  15. CALTRATE [Concomitant]
  16. MULTI-VITAMINS [Concomitant]
  17. VITAMIN D [Concomitant]
  18. VITAMIN B-12 [Concomitant]

REACTIONS (9)
  - CHEST PAIN [None]
  - DYSPNOEA [None]
  - ELECTROCARDIOGRAM QT PROLONGED [None]
  - FATIGUE [None]
  - HOT FLUSH [None]
  - HYPERTENSION [None]
  - PALPITATIONS [None]
  - PERIPHERAL COLDNESS [None]
  - URINARY TRACT INFECTION [None]
